FAERS Safety Report 7433251-2 (Version None)
Quarter: 2011Q2

REPORT INFORMATION
  Report Type: 
  Country: None (occurrence: None)
  Receive Date: 20110422
  Receipt Date: 20110419
  Transmission Date: 20111010
  Serious: Yes (Other)
  Sender: FDA-Public Use
  Company Number: CHPA2011US05705

PATIENT
  Age: 36 Year
  Sex: Male

DRUGS (1)
  1. BENEFIBER W/ WHEAT DEXTRIN [Suspect]
     Indication: NUTRITIONAL SUPPORT
     Dosage: UNK, UNK
     Route: 048
     Dates: start: 20110301, end: 20110418

REACTIONS (3)
  - RASH [None]
  - URTICARIA [None]
  - PRURITUS [None]
